FAERS Safety Report 14416442 (Version 1)
Quarter: 2018Q1

REPORT INFORMATION
  Report Type: Spontaneous
  Country: PL (occurrence: PL)
  Receive Date: 20180122
  Receipt Date: 20180122
  Transmission Date: 20180509
  Serious: Yes (Death, Life-Threatening, Other)
  Sender: FDA-Public Use
  Company Number: PL-ACCORD-062787

PATIENT
  Age: 60 Year
  Sex: Female

DRUGS (6)
  1. KETOPROFEN/KETOPROFEN ARGINATE/KETOPROFEN LYSINE/KETOPROFEN SODIUM [Concomitant]
  2. TRAMADOL. [Concomitant]
     Active Substance: TRAMADOL
     Dosage: TWICE DAILY
  3. DEXAMETHASONE. [Concomitant]
     Active Substance: DEXAMETHASONE
  4. CISPLATIN. [Suspect]
     Active Substance: CISPLATIN
     Indication: LUNG SQUAMOUS CELL CARCINOMA METASTATIC
     Route: 042
  5. GEMCITABINE/GEMCITABINE HYDROCHLORIDE [Suspect]
     Active Substance: GEMCITABINE\GEMCITABINE HYDROCHLORIDE
     Indication: LUNG SQUAMOUS CELL CARCINOMA METASTATIC
     Dosage: ON DAY 1 AND 8, CYCLICAL
     Route: 042
  6. OMEPRAZOLE. [Concomitant]
     Active Substance: OMEPRAZOLE

REACTIONS (8)
  - Septic shock [Fatal]
  - Toxicity to various agents [None]
  - Pneumonitis [Fatal]
  - Hepatic failure [Unknown]
  - Pulmonary oedema [Unknown]
  - Lung infection [None]
  - Multiple organ dysfunction syndrome [Fatal]
  - Cardiopulmonary failure [Fatal]
